FAERS Safety Report 9723776 (Version 2)
Quarter: 2013Q4

REPORT INFORMATION
  Report Type: Spontaneous
  Country: NL (occurrence: NL)
  Receive Date: 20131202
  Receipt Date: 20131206
  Transmission Date: 20140711
  Serious: Yes (Hospitalization)
  Sender: FDA-Public Use
  Company Number: NL-TEVA-445516ISR

PATIENT
  Age: 40 Year
  Sex: Female

DRUGS (4)
  1. TEMOZOLOMIDE CAPSULE 100MG [Suspect]
     Indication: ASTROCYTOMA
     Route: 048
     Dates: start: 20130722
  2. OMEPRAZOL CAPSULE MGA 20MG [Concomitant]
     Dosage: 20 MILLIGRAM DAILY; PROLONGED-RELEASE CAPSULE
     Route: 048
  3. KEPPRA TABLET FILMOMHULD  500MG [Concomitant]
     Dosage: 3000 MILLIGRAM DAILY;
     Route: 048
  4. AMITRIPTYLINE TABLET 10MG [Concomitant]
     Dosage: 40 MILLIGRAM DAILY;
     Route: 048

REACTIONS (2)
  - Hypothyroidism [Recovering/Resolving]
  - Syncope [Unknown]
